FAERS Safety Report 15762671 (Version 2)
Quarter: 2019Q1

REPORT INFORMATION
  Report Type: Spontaneous
  Country: US (occurrence: US)
  Receive Date: 20181226
  Receipt Date: 20190131
  Transmission Date: 20190417
  Serious: Yes (Other)
  Sender: FDA-Public Use
  Company Number: US-PFIZER INC-2018529167

PATIENT
  Age: 57 Year
  Sex: Female

DRUGS (1)
  1. SOMAVERT [Suspect]
     Active Substance: PEGVISOMANT
     Indication: ACROMEGALY
     Dosage: 25 MG, DAILY
     Route: 058

REACTIONS (7)
  - Hepatic steatosis [Unknown]
  - Asthenia [Unknown]
  - Glucose tolerance impaired [Unknown]
  - Diarrhoea [Unknown]
  - Insulin-like growth factor increased [Recovering/Resolving]
  - Tremor [Unknown]
  - Product dose omission [Unknown]

NARRATIVE: CASE EVENT DATE: 20190117
